FAERS Safety Report 13190628 (Version 8)
Quarter: 2020Q4

REPORT INFORMATION
  Report Type: Spontaneous
  Country: US (occurrence: US)
  Receive Date: 20170206
  Receipt Date: 20201209
  Transmission Date: 20210113
  Serious: Yes (Hospitalization)
  Sender: FDA-Public Use
  Company Number: US-IMPAX LABORATORIES, INC-2017-IPXL-00231

PATIENT
  Age: 57 Year
  Sex: Male
  Weight: 81 kg

DRUGS (6)
  1. RYTARY [Suspect]
     Active Substance: CARBIDOPA\LEVODOPA
     Dosage: 23.75/95 MG, 1 CAPSULE 4 TIMES PER DAY
     Route: 048
     Dates: start: 201701
  2. RYTARY [Suspect]
     Active Substance: CARBIDOPA\LEVODOPA
     Dosage: 48.75MG/195, 1 DOSAGE FORM, QID
     Route: 048
  3. AZILECT [Concomitant]
     Active Substance: RASAGILINE MESYLATE
     Indication: PARKINSON^S DISEASE
     Dosage: 1 MG, 1 /DAY
     Route: 065
  4. RYTARY [Suspect]
     Active Substance: CARBIDOPA\LEVODOPA
     Dosage: 145 MG/ 195MG. 1 CAPSULE 4 X DAY
     Route: 065
  5. RYTARY [Suspect]
     Active Substance: CARBIDOPA\LEVODOPA
     Indication: PARKINSON^S DISEASE
     Dosage: 61.25/245 MG 1 CAPSULE 5 TIMES PER DAY
     Route: 048
     Dates: start: 2016
  6. RYTARY [Suspect]
     Active Substance: CARBIDOPA\LEVODOPA
     Dosage: UNK
     Route: 065
     Dates: start: 2016

REACTIONS (15)
  - Deep brain stimulation [Unknown]
  - Stress [Unknown]
  - Amnesia [Unknown]
  - Gait disturbance [Unknown]
  - Abnormal dreams [Not Recovered/Not Resolved]
  - Speech disorder [Not Recovered/Not Resolved]
  - Dysarthria [Unknown]
  - Therapeutic response shortened [Not Recovered/Not Resolved]
  - Fatigue [Unknown]
  - Somnolence [Unknown]
  - Dyskinesia [Not Recovered/Not Resolved]
  - Balance disorder [Unknown]
  - Head titubation [Unknown]
  - Affect lability [Unknown]
  - Loss of personal independence in daily activities [Unknown]

NARRATIVE: CASE EVENT DATE: 2017
